FAERS Safety Report 22062345 (Version 1)
Quarter: 2023Q1

REPORT INFORMATION
  Report Type: Report from Study
  Country: US (occurrence: US)
  Receive Date: 20230305
  Receipt Date: 20230305
  Transmission Date: 20230417
  Serious: Yes (Other)
  Sender: FDA-Public Use
  Company Number: US-AUROBINDO-AUR-APL-2023-003587

PATIENT
  Age: 44 Year
  Sex: Male

DRUGS (10)
  1. BORTEZOMIB [Suspect]
     Active Substance: BORTEZOMIB
     Indication: Aplasia pure red cell
     Dosage: UNK
     Route: 065
  2. PREDNISONE [Suspect]
     Active Substance: PREDNISONE
     Indication: Aplasia pure red cell
     Dosage: UNK
     Route: 065
  3. DANAZOL [Suspect]
     Active Substance: DANAZOL
     Indication: Aplasia pure red cell
     Dosage: UNK
     Route: 065
  4. RITUXIMAB [Suspect]
     Active Substance: RITUXIMAB
     Indication: Aplasia pure red cell
     Dosage: UNK
     Route: 065
  5. IDARUBICIN [Concomitant]
     Active Substance: IDARUBICIN
     Indication: Acute myeloid leukaemia
     Dosage: UNK
     Route: 065
  6. CLADRIBINE [Concomitant]
     Active Substance: CLADRIBINE
     Indication: Acute myeloid leukaemia
     Dosage: UNK
     Route: 065
  7. CYTARABINE [Concomitant]
     Active Substance: CYTARABINE
     Indication: Acute myeloid leukaemia
     Dosage: UNK
     Route: 065
  8. FLUDARABINE [Concomitant]
     Active Substance: FLUDARABINE PHOSPHATE
     Indication: Product used for unknown indication
     Dosage: UNK
     Route: 065
  9. BUSULFAN [Concomitant]
     Active Substance: BUSULFAN
     Indication: Product used for unknown indication
     Dosage: UNK
     Route: 065
  10. IBRUTINIB [Concomitant]
     Active Substance: IBRUTINIB
     Indication: Aplasia
     Dosage: UNK
     Route: 065

REACTIONS (1)
  - Drug ineffective [Unknown]
